FAERS Safety Report 23823167 (Version 3)
Quarter: 2024Q3

REPORT INFORMATION
  Report Type: Spontaneous
  Country: US (occurrence: US)
  Receive Date: 20240507
  Receipt Date: 20240711
  Transmission Date: 20241016
  Serious: Yes (Other)
  Sender: BRISTOL MYERS SQUIBB
  Company Number: US-BRISTOL-MYERS SQUIBB COMPANY-2024-068395

PATIENT
  Age: 77 Year
  Sex: Male

DRUGS (1)
  1. THALOMID [Suspect]
     Active Substance: THALIDOMIDE
     Indication: Myelofibrosis
     Dosage: TAKE 1 CAPSULE BY MOUTH DAILY FOR 28 DAYS ON AN EMPTY STOMACH, AT LEAST 1 HOUR AFTER EATING A MEAL
     Route: 048

REACTIONS (1)
  - Product administration interrupted [Unknown]
